FAERS Safety Report 4942593-1 (Version None)
Quarter: 2006Q1

REPORT INFORMATION
  Report Type: 
  Country: None (occurrence: None)
  Receive Date: 20060310
  Receipt Date: 20060224
  Transmission Date: 20060701
  Serious: Yes (Life-Threatening)
  Sender: FDA-Public Use
  Company Number: 222750

PATIENT
  Age: 67 Year
  Sex: Male

DRUGS (1)
  1. TNKASE [Suspect]
     Indication: ACUTE MYOCARDIAL INFARCTION
     Dates: start: 20060223

REACTIONS (1)
  - GASTROINTESTINAL DISORDER [None]
